FAERS Safety Report 10581298 (Version 1)
Quarter: 2014Q4

REPORT INFORMATION
  Report Type: Spontaneous
  Country: GB (occurrence: GB)
  Receive Date: 20141113
  Receipt Date: 20141113
  Transmission Date: 20150529
  Serious: Yes (Other)
  Sender: FDA-Public Use
  Company Number: GB-TEVA-520132ISR

PATIENT
  Age: 47 Year
  Sex: Female
  Weight: 48.5 kg

DRUGS (2)
  1. AMITRIPTYLINE HYDROCHLORIDE. [Concomitant]
     Active Substance: AMITRIPTYLINE HYDROCHLORIDE
     Dates: start: 20140811, end: 20141002
  2. LAMOTRIGINE. [Suspect]
     Active Substance: LAMOTRIGINE
     Indication: PARTIAL SEIZURES
     Dates: start: 20140822

REACTIONS (4)
  - Rash maculo-papular [Recovering/Resolving]
  - Erythema [Unknown]
  - Conjunctival haemorrhage [Unknown]
  - Eye swelling [Unknown]

NARRATIVE: CASE EVENT DATE: 20141017
